FAERS Safety Report 14597116 (Version 1)
Quarter: 2018Q1

REPORT INFORMATION
  Report Type: Spontaneous
  Country: KR (occurrence: KR)
  Receive Date: 20180305
  Receipt Date: 20180305
  Transmission Date: 20180509
  Serious: Yes (Death, Hospitalization, Other)
  Sender: FDA-Public Use
  Company Number: KR-VISTAPHARM, INC.-VER201801-000303

PATIENT
  Age: 51 Year
  Sex: Male

DRUGS (4)
  1. LACTULOSE. [Suspect]
     Active Substance: LACTULOSE
     Indication: HEPATIC CIRRHOSIS
     Route: 048
  2. LACTULOSE. [Suspect]
     Active Substance: LACTULOSE
     Indication: HEPATIC ENCEPHALOPATHY
  3. PANTOPRAZOLE [Concomitant]
     Active Substance: PANTOPRAZOLE
     Indication: HAEMOSTASIS
  4. TERLIPRESSIN [Concomitant]
     Active Substance: TERLIPRESSIN
     Indication: HAEMOSTASIS

REACTIONS (6)
  - Pneumatosis intestinalis [Unknown]
  - Abdominal distension [Unknown]
  - Dyspnoea [Fatal]
  - Hypoxia [Fatal]
  - Condition aggravated [Unknown]
  - Mental fatigue [Unknown]
